FAERS Safety Report 4918210-3 (Version None)
Quarter: 2006Q1

REPORT INFORMATION
  Report Type: 
  Country: None (occurrence: None)
  Receive Date: 20060214
  Receipt Date: 20060208
  Transmission Date: 20060701
  Serious: Yes (Other)
  Sender: FDA-Public Use
  Company Number: GBWYE351631JAN06

PATIENT
  Sex: Male

DRUGS (1)
  1. EFFEXOR [Suspect]
     Dosage: ORAL
     Route: 048

REACTIONS (2)
  - CHRONIC LYMPHOCYTIC LEUKAEMIA [None]
  - CONTUSION [None]
